FAERS Safety Report 23487680 (Version 5)
Quarter: 2024Q3

REPORT INFORMATION
  Report Type: Report from Study
  Country: BR (occurrence: BR)
  Receive Date: 20240206
  Receipt Date: 20240913
  Transmission Date: 20241016
  Serious: Yes (Death, Other)
  Sender: NOVARTIS
  Company Number: BR-002147023-NVSC2024BR019871

PATIENT
  Sex: Female

DRUGS (1)
  1. KISQALI [Suspect]
     Active Substance: RIBOCICLIB
     Indication: Breast cancer
     Dosage: UNK
     Route: 065

REACTIONS (9)
  - Respiratory failure [Fatal]
  - Cardiogenic shock [Fatal]
  - Breast cancer metastatic [Fatal]
  - Cardiac failure [Fatal]
  - Diabetes mellitus [Fatal]
  - Acute abdomen [Fatal]
  - Cataract [Not Recovered/Not Resolved]
  - Renal disorder [Recovering/Resolving]
  - Decreased immune responsiveness [Recovered/Resolved]
